FAERS Safety Report 16024014 (Version 1)
Quarter: 2019Q1

REPORT INFORMATION
  Report Type: Spontaneous
  Country: FR (occurrence: FR)
  Receive Date: 20190301
  Receipt Date: 20190301
  Transmission Date: 20190418
  Serious: Yes (Hospitalization)
  Sender: FDA-Public Use
  Company Number: FR-PFIZER INC-2019088555

PATIENT
  Age: 37 Year
  Sex: Female
  Weight: 68 kg

DRUGS (7)
  1. AERIUS (DESLORATADINE) [Concomitant]
     Active Substance: DESLORATADINE
  2. VENTOLINE [SALBUTAMOL SULFATE] [Concomitant]
     Active Substance: ALBUTEROL SULFATE
  3. STILNOX [Suspect]
     Active Substance: ZOLPIDEM TARTRATE
     Indication: PANIC ATTACK
     Dosage: 2 DF, 1X/DAY
     Route: 048
     Dates: start: 2002
  4. PARIET [Concomitant]
     Active Substance: RABEPRAZOLE SODIUM
  5. ALPRAZOLAM. [Suspect]
     Active Substance: ALPRAZOLAM
     Indication: PANIC ATTACK
     Dosage: 200 MG, 1X/DAY
     Route: 048
     Dates: start: 2002
  6. SOTALEX [Concomitant]
     Active Substance: SOTALOL
  7. ZOLOFT [Concomitant]
     Active Substance: SERTRALINE HYDROCHLORIDE

REACTIONS (1)
  - Drug use disorder [Not Recovered/Not Resolved]

NARRATIVE: CASE EVENT DATE: 2002
